FAERS Safety Report 9661654 (Version 2)
Quarter: 2013Q4

REPORT INFORMATION
  Report Type: Spontaneous
  Country: US (occurrence: US)
  Receive Date: 20131031
  Receipt Date: 20131031
  Transmission Date: 20140711
  Serious: No
  Sender: FDA-Public Use
  Company Number: US-PURDUE-USA-2010-0053290

PATIENT
  Sex: Male

DRUGS (3)
  1. OXYCONTIN (NDA 22-272) [Suspect]
     Indication: FRACTURE
     Dosage: 40 MG, TID
     Route: 048
     Dates: start: 20101027
  2. OXYCONTIN (NDA 22-272) [Suspect]
     Indication: PAIN
     Dosage: 60 MG, UNK
  3. GABAPENTIN [Concomitant]
     Indication: PRODUCT USED FOR UNKNOWN INDICATION
     Dosage: UNK
     Route: 048

REACTIONS (2)
  - Abdominal discomfort [Recovered/Resolved]
  - Drug ineffective [Not Recovered/Not Resolved]
